FAERS Safety Report 5465564-8 (Version None)
Quarter: 2007Q3

REPORT INFORMATION
  Report Type: 
  Country: None (occurrence: None)
  Receive Date: 20070924
  Receipt Date: 20070917
  Transmission Date: 20080115
  Serious: Yes (Other)
  Sender: FDA-Public Use
  Company Number: US-ASTRAZENECA-2007AC01710

PATIENT
  Age: 73 Year
  Sex: Female

DRUGS (11)
  1. ROSUVASTATIN [Suspect]
     Route: 048
     Dates: start: 20060209, end: 20060531
  2. GEMFIBROZIL [Interacting]
     Route: 048
     Dates: start: 20040416, end: 20060316
  3. AMIODARONE HCL [Interacting]
     Dates: start: 20060515
  4. GLYBURIDE [Concomitant]
     Route: 048
  5. METFORMIN [Concomitant]
     Route: 048
  6. LEVOTHYROXINE SODIUM [Concomitant]
     Route: 048
  7. LISINOPRIL [Concomitant]
     Route: 048
  8. METOPROLOL [Concomitant]
     Route: 048
  9. FUROSEMIDE [Concomitant]
     Route: 048
  10. ALENDRONATE SODIUM [Concomitant]
     Route: 048
  11. ASPIRIN [Concomitant]
     Route: 048

REACTIONS (2)
  - DRUG INTERACTION [None]
  - TRANSAMINASES INCREASED [None]
